FAERS Safety Report 6729195-1 (Version None)
Quarter: 2010Q2

REPORT INFORMATION
  Report Type: 
  Country: None (occurrence: None)
  Receive Date: 20100517
  Receipt Date: 20100414
  Transmission Date: 20101027
  Serious: No
  Sender: FDA-Public Use
  Company Number: US-ABBOTT-10P-163-0639481-00

PATIENT
  Sex: Female
  Weight: 88.984 kg

DRUGS (10)
  1. SIMCOR [Suspect]
     Indication: BLOOD CHOLESTEROL INCREASED
     Dosage: 500/20 MG DAILY
     Route: 048
     Dates: start: 20100301
  2. SKELAKIN [Concomitant]
     Indication: DRUG USE FOR UNKNOWN INDICATION
  3. CYCLOBENZAPRINE [Concomitant]
     Indication: FIBROMYALGIA
     Dosage: 3- 5 MG TABLETS DAILY AT BEDTIME
     Route: 048
  4. FEXOPHENODINE [Concomitant]
     Indication: HYPERSENSITIVITY
     Route: 048
  5. METOPROLOL TARTRATE [Concomitant]
     Indication: HYPERTENSION
     Route: 048
  6. FOLIC ACID [Concomitant]
     Indication: VITAMIN SUPPLEMENTATION
     Route: 048
  7. MULTIVITAMIN PLUS 50 ADULT [Concomitant]
     Indication: VITAMIN SUPPLEMENTATION
     Route: 048
  8. METFORMIN HYDROCHLORIDE [Concomitant]
     Indication: DRUG USE FOR UNKNOWN INDICATION
     Route: 048
  9. LISINOPRIL [Concomitant]
     Indication: DRUG USE FOR UNKNOWN INDICATION
     Route: 048
  10. OMEPRAZOLE [Concomitant]
     Indication: ABDOMINAL DISCOMFORT
     Route: 048

REACTIONS (5)
  - DIZZINESS [None]
  - EXCORIATION [None]
  - FEELING HOT [None]
  - NAUSEA [None]
  - PARAESTHESIA [None]
